FAERS Safety Report 9799720 (Version 2)
Quarter: 2014Q1

REPORT INFORMATION
  Report Type: Spontaneous
  Country: US (occurrence: US)
  Receive Date: 20140106
  Receipt Date: 20140106
  Transmission Date: 20141002
  Serious: No
  Sender: FDA-Public Use
  Company Number: US-GILEAD-2010-0031650

PATIENT
  Age: 70 Year
  Sex: Female
  Weight: 66.22 kg

DRUGS (1)
  1. LETAIRIS [Suspect]
     Indication: PULMONARY ARTERIAL HYPERTENSION
     Route: 048
     Dates: start: 20100806

REACTIONS (4)
  - Coma [Recovered/Resolved]
  - Vomiting [Unknown]
  - Local swelling [Unknown]
  - Hot flush [Unknown]
